FAERS Safety Report 6686194-6 (Version None)
Quarter: 2010Q2

REPORT INFORMATION
  Report Type: 
  Country: None (occurrence: None)
  Receive Date: 20100419
  Receipt Date: 20100414
  Transmission Date: 20101027
  Serious: Yes (Other)
  Sender: FDA-Public Use
  Company Number: JP-ASTRAZENECA-2010SE16614

PATIENT
  Age: 56 Year
  Sex: Female

DRUGS (4)
  1. CRESTOR [Suspect]
     Indication: HYPERCHOLESTEROLAEMIA
     Route: 048
     Dates: end: 20100215
  2. AMLODIN [Concomitant]
     Route: 048
     Dates: start: 20090113
  3. ARTIST [Concomitant]
     Route: 048
     Dates: start: 20090123
  4. CO-DIO [Concomitant]
     Dosage: DOSE UNKNOWN, FREQUENCY: DAILY
     Route: 048
     Dates: start: 20091204

REACTIONS (1)
  - RENAL IMPAIRMENT [None]
